FAERS Safety Report 9552047 (Version 1)
Quarter: 2013Q3

REPORT INFORMATION
  Report Type: Spontaneous
  Country: US (occurrence: None)
  Receive Date: 20130724
  Receipt Date: 20130724
  Transmission Date: 20140515
  Serious: Yes (Hospitalization)
  Sender: FDA-Public Use
  Company Number: PHEH2013US002617

PATIENT
  Age: 54 Year
  Sex: Male
  Weight: 97.5 kg

DRUGS (1)
  1. GLEEVEC [Suspect]
     Indication: CHRONIC MYELOID LEUKAEMIA
     Route: 048

REACTIONS (3)
  - Bronchitis [None]
  - Cardiac failure congestive [None]
  - Influenza [None]
